FAERS Safety Report 5304501-3 (Version None)
Quarter: 2007Q2

REPORT INFORMATION
  Report Type: 
  Country: None (occurrence: None)
  Receive Date: 20070423
  Receipt Date: 20070412
  Transmission Date: 20071010
  Serious: Yes (Other)
  Sender: FDA-Public Use
  Company Number: US-JNJFOC-20070403051

PATIENT
  Sex: Female

DRUGS (3)
  1. DOXIL [Suspect]
     Indication: OVARIAN CANCER
  2. COZAAR [Concomitant]
     Indication: HYPERTENSION
     Dosage: USED WHEN BLOOD PRESSURE } 110/50
     Route: 065
  3. HYDROCHLOROTHIAZIDE [Concomitant]
     Indication: HYPERTENSION
     Dosage: USED WHEN BLOOD PRESSURE }110/50
     Route: 065

REACTIONS (2)
  - BLOOD PRESSURE INCREASED [None]
  - HEADACHE [None]
